FAERS Safety Report 5387238-4 (Version None)
Quarter: 2007Q3

REPORT INFORMATION
  Report Type: 
  Country: None (occurrence: None)
  Receive Date: 20070716
  Receipt Date: 20070705
  Transmission Date: 20080115
  Serious: Yes (Other)
  Sender: FDA-Public Use
  Company Number: CA-JNJFOC-20070403362

PATIENT
  Sex: Male

DRUGS (10)
  1. REMICADE [Suspect]
     Route: 042
  2. REMICADE [Suspect]
     Route: 042
  3. REMICADE [Suspect]
     Route: 042
  4. REMICADE [Suspect]
     Route: 042
  5. REMICADE [Suspect]
     Route: 042
  6. REMICADE [Suspect]
     Indication: COLITIS
     Route: 042
  7. AZATHIOPRINE [Concomitant]
  8. CIPROFLOXACIN [Concomitant]
  9. METRONIDAZOLE [Concomitant]
  10. 5-ASA [Concomitant]

REACTIONS (2)
  - INFLAMMATORY BOWEL DISEASE [None]
  - MYOSITIS [None]
